FAERS Safety Report 7391020-6 (Version None)
Quarter: 2011Q2

REPORT INFORMATION
  Report Type: 
  Country: None (occurrence: None)
  Receive Date: 20110404
  Receipt Date: 20110329
  Transmission Date: 20111010
  Serious: No
  Sender: FDA-Public Use
  Company Number: US-PFIZER INC-2011071211

PATIENT
  Sex: Female
  Weight: 79.365 kg

DRUGS (5)
  1. ADVIL LIQUI-GELS [Suspect]
     Indication: INSOMNIA
  2. ADVIL LIQUI-GELS [Suspect]
     Indication: BURNING SENSATION
  3. ADVIL LIQUI-GELS [Suspect]
     Indication: ANXIETY
     Dosage: 200 MG, UNK
     Route: 048
     Dates: start: 20110301, end: 20110301
  4. ADVIL LIQUI-GELS [Suspect]
     Indication: NERVOUSNESS
  5. SERTRALINE HYDROCHLORIDE [Suspect]
     Indication: DEPRESSION
     Dosage: UNK
     Route: 048
     Dates: start: 20110303, end: 20110301

REACTIONS (4)
  - ANXIETY [None]
  - BURNING SENSATION [None]
  - INSOMNIA [None]
  - NERVOUSNESS [None]
